FAERS Safety Report 25608292 (Version 6)
Quarter: 2025Q3

REPORT INFORMATION
  Report Type: Spontaneous
  Country: US (occurrence: US)
  Receive Date: 20250725
  Receipt Date: 20250925
  Transmission Date: 20251020
  Serious: Yes (Death, Hospitalization, Other)
  Sender: GILEAD
  Company Number: US-GILEAD-2025-0721932

PATIENT
  Age: 29 Year
  Sex: Female
  Weight: 81.6 kg

DRUGS (2)
  1. YESCARTA [Suspect]
     Active Substance: AXICABTAGENE CILOLEUCEL
     Indication: Primary mediastinal large B-cell lymphoma
     Route: 042
     Dates: start: 20250715
  2. YESCARTA [Suspect]
     Active Substance: AXICABTAGENE CILOLEUCEL
     Route: 042
     Dates: start: 20250715

REACTIONS (9)
  - Brain oedema [Fatal]
  - Brain death [Fatal]
  - Brain stem haemorrhage [Unknown]
  - Brain herniation [Unknown]
  - Pupil fixed [Unknown]
  - Immune effector cell-associated neurotoxicity syndrome [Unknown]
  - Cytokine release syndrome [Recovering/Resolving]
  - Pulmonary embolism [Unknown]
  - Areflexia [Unknown]

NARRATIVE: CASE EVENT DATE: 20250717
